FAERS Safety Report 9727795 (Version 5)
Quarter: 2014Q1

REPORT INFORMATION
  Report Type: Report from Study
  Country: US (occurrence: US)
  Receive Date: 20131204
  Receipt Date: 20140325
  Transmission Date: 20141002
  Serious: Yes (Hospitalization)
  Sender: FDA-Public Use
  Company Number: US-PFIZER INC-2013339340

PATIENT
  Age: 46 Year
  Sex: Female
  Weight: 126.99 kg

DRUGS (11)
  1. TOFACITINIB CITRATE [Suspect]
     Indication: RHEUMATOID ARTHRITIS
     Dosage: 10 MG, 2X/DAY
     Route: 048
     Dates: start: 20110511, end: 20131120
  2. METHOTREXATE [Suspect]
     Indication: RHEUMATOID ARTHRITIS
     Dosage: 15 MG, WEEKLY; FORMULATION - 2.5 MG TABLET
     Route: 048
     Dates: start: 19990420, end: 20131119
  3. ALEVE [Concomitant]
     Indication: PAIN
     Dosage: UNK, AS NEEDED
     Route: 048
  4. TYLENOL [Concomitant]
     Indication: PAIN
     Dosage: UNK, AS NEEDED
     Route: 048
  5. FOLIC ACID [Concomitant]
     Indication: SUPPLEMENTATION THERAPY
     Dosage: 1 MG, EVERYDAY
     Route: 048
     Dates: end: 20131120
  6. ASPIRIN [Concomitant]
     Indication: ANTICOAGULANT THERAPY
     Dosage: 325 MG, 1X/DAY
     Route: 048
  7. LISINOPRIL [Concomitant]
     Indication: HYPERTENSION
     Dosage: 5 MG, 1X/DAY
     Route: 048
  8. METFORMIN [Concomitant]
     Indication: DIABETES MELLITUS
     Dosage: 500 MG, 2X/DAY
     Route: 048
  9. SYNTHROID [Concomitant]
     Indication: HYPOTHYROIDISM
     Dosage: 112 UG, 1X/DAY
     Route: 048
  10. VITAMIN D [Concomitant]
     Indication: SUPPLEMENTATION THERAPY
     Dosage: UNK, 1X/DAY
     Route: 048
  11. VYTORIN [Concomitant]
     Indication: HYPERLIPIDAEMIA
     Dosage: 10/40. 1X/DAY
     Route: 048

REACTIONS (3)
  - Tubo-ovarian abscess [Recovered/Resolved]
  - Peritonitis [Recovered/Resolved]
  - Sepsis [Recovered/Resolved]
